FAERS Safety Report 10144398 (Version 2)
Quarter: 2014Q2

REPORT INFORMATION
  Report Type: Report from Study
  Country: NL (occurrence: NL)
  Receive Date: 20140430
  Receipt Date: 20140430
  Transmission Date: 20141212
  Serious: Yes (Other)
  Sender: FDA-Public Use
  Company Number: NL-US-EMD SERONO, INC.-7243391

PATIENT
  Age: 35 Year
  Sex: Female
  Weight: 85 kg

DRUGS (9)
  1. REBIF [Suspect]
     Indication: MULTIPLE SCLEROSIS
     Dosage: FIRST AND SECOND WEEKS
     Route: 058
     Dates: start: 20130913, end: 20131011
  2. REBIF [Suspect]
     Dosage: SECOND AND THIRD WEEKS
     Route: 058
     Dates: start: 20131011
  3. REBIF [Suspect]
     Route: 058
     Dates: end: 20140329
  4. REBIF [Suspect]
     Route: 058
     Dates: start: 20140330, end: 20140407
  5. REBIF [Suspect]
     Route: 058
     Dates: start: 20140408, end: 20140408
  6. REBIF [Suspect]
     Route: 058
     Dates: start: 2004, end: 2006
  7. NAPROXEN [Concomitant]
     Indication: PAIN
     Dosage: AS NEEDED
     Route: 048
     Dates: start: 20140330
  8. NAPROXEN [Concomitant]
     Indication: PROPHYLAXIS
  9. OMEPRAZOL                          /00661201/ [Concomitant]
     Indication: ABDOMINAL DISCOMFORT
     Route: 048
     Dates: start: 20140330

REACTIONS (8)
  - Pyelonephritis [Not Recovered/Not Resolved]
  - Abortion spontaneous [Unknown]
  - Weight increased [Not Recovered/Not Resolved]
  - Dizziness [Unknown]
  - Influenza like illness [Not Recovered/Not Resolved]
  - Injection site erythema [Not Recovered/Not Resolved]
  - Fatigue [Not Recovered/Not Resolved]
  - Maternal exposure timing unspecified [Recovered/Resolved]
